FAERS Safety Report 7010240-3 (Version None)
Quarter: 2010Q3

REPORT INFORMATION
  Report Type: 
  Country: None (occurrence: None)
  Receive Date: 20100923
  Receipt Date: 20100922
  Transmission Date: 20110219
  Serious: Yes (Hospitalization)
  Sender: FDA-Public Use
  Company Number: GXKR2009DE04083

PATIENT
  Age: 87 Year
  Sex: Female
  Weight: 84 kg

DRUGS (13)
  1. RAMIPRIL [Suspect]
     Indication: HYPERTENSION
     Dosage: 5 MG, QD
     Route: 048
     Dates: start: 20051201
  2. HYDROCHLOROTHIAZIDE [Suspect]
     Indication: HYPERTENSION
     Dosage: 25 MG, QD
     Route: 048
     Dates: start: 20051201
  3. METOPROLOL TARTRATE [Suspect]
     Indication: HYPERTENSION
     Dosage: 95 MG, BID
     Route: 048
     Dates: start: 20051201
  4. METOPROLOL TARTRATE [Suspect]
     Dosage: 95 MG, QD
     Dates: start: 20081012
  5. AMLODIPIN ^ORIFARM^ [Suspect]
     Indication: HYPERTENSION
     Dosage: 2.5 MG, QD
     Route: 048
     Dates: start: 20080801
  6. ALLOPURINOL [Concomitant]
     Route: 048
  7. CIPRALEX                                /DEN/ [Concomitant]
     Route: 048
  8. ISCOVER [Concomitant]
     Route: 048
  9. LEVOTHYROXINE SODIUM [Concomitant]
     Route: 048
  10. NEXIUM [Concomitant]
     Route: 048
  11. SIMVASTATIN [Concomitant]
     Route: 048
  12. SPASMEX [Concomitant]
     Route: 048
  13. VESICARE [Concomitant]
     Route: 048

REACTIONS (1)
  - BRADYCARDIA [None]
